FAERS Safety Report 8256628-4 (Version None)
Quarter: 2012Q2

REPORT INFORMATION
  Report Type: 
  Country: None (occurrence: None)
  Receive Date: 20120403
  Receipt Date: 20120323
  Transmission Date: 20120825
  Serious: Yes (Hospitalization, Other)
  Sender: FDA-Public Use
  Company Number: US-MERCK-1107USA03272

PATIENT
  Age: 56 Year
  Sex: Female

DRUGS (7)
  1. PRILOSEC [Concomitant]
     Route: 065
     Dates: start: 19950101, end: 20000101
  2. FOSAMAX [Suspect]
     Route: 048
     Dates: start: 20011023, end: 20070101
  3. FOSAMAX [Suspect]
     Indication: OSTEOPOROSIS
     Route: 048
     Dates: start: 19960627, end: 20011108
  4. CALCIUM (UNSPECIFIED) [Concomitant]
     Route: 065
  5. ASCORBIC ACID [Concomitant]
     Route: 065
     Dates: start: 19950101
  6. MAGNESIUM (UNSPECIFIED) [Concomitant]
     Route: 065
     Dates: start: 19950101
  7. CHOLECALCIFEROL [Concomitant]
     Route: 065
     Dates: start: 19950101

REACTIONS (30)
  - LOW TURNOVER OSTEOPATHY [None]
  - FOOT DEFORMITY [None]
  - FOOT FRACTURE [None]
  - ANAL SPHINCTER ATONY [None]
  - SCAPULA FRACTURE [None]
  - ONYCHOMYCOSIS [None]
  - HEPATIC STEATOSIS [None]
  - GASTROINTESTINAL DISORDER [None]
  - TOOTH DISORDER [None]
  - GALLBLADDER DISORDER [None]
  - BREAST FIBROSIS [None]
  - RECTOCELE [None]
  - FRACTURE NONUNION [None]
  - CHOLELITHIASIS [None]
  - PELVIC PROLAPSE [None]
  - LIVER DISORDER [None]
  - HAEMORRHOIDS [None]
  - FEMUR FRACTURE [None]
  - FALL [None]
  - CYSTOCELE [None]
  - ARTHRITIS [None]
  - METASTASES TO LARGE INTESTINE [None]
  - FRACTURED ISCHIUM [None]
  - LUNG NEOPLASM [None]
  - ENZYME ABNORMALITY [None]
  - DEPRESSION [None]
  - STRESS URINARY INCONTINENCE [None]
  - DIARRHOEA [None]
  - BREAST CANCER [None]
  - BUNION [None]
